FAERS Safety Report 12728179 (Version 1)
Quarter: 2016Q3

REPORT INFORMATION
  Report Type: Spontaneous
  Country: US (occurrence: US)
  Receive Date: 20160909
  Receipt Date: 20160909
  Transmission Date: 20161109
  Serious: No
  Sender: FDA-Public Use
  Company Number: US-BECTON DICKINSON-2016BDN00009

PATIENT
  Sex: Male
  Weight: 108.39 kg

DRUGS (8)
  1. DIPROSONE [Concomitant]
     Active Substance: BETAMETHASONE DIPROPIONATE
     Dosage: 1 DOSAGE UNITS, 2X/DAY
     Route: 061
  2. MULTIVITAMIN [Concomitant]
     Active Substance: VITAMINS
     Dosage: 1 TABLETS, 1X/DAY
     Route: 048
  3. ZOCOR [Concomitant]
     Active Substance: SIMVASTATIN
     Dosage: 40 MG, 1X/DAY
     Route: 048
  4. CHLORAPREP WITH TINT [Suspect]
     Active Substance: CHLORHEXIDINE GLUCONATE\ISOPROPYL ALCOHOL
     Indication: INFECTION PROPHYLAXIS
     Dosage: 10.5 ML, TWICE TO LEFT SHOULDER INCLUDING AXILLARY AREA
     Route: 061
     Dates: start: 20151218, end: 20151218
  5. ALBUTEROL HFA [Concomitant]
     Active Substance: ALBUTEROL SULFATE
     Dosage: 2 PUFFES, EVERY 4 HOURS AS NEEDED
  6. MOTRIN [Concomitant]
     Active Substance: IBUPROFEN
     Dosage: 400 MG, 3X/DAY AS NEEDED
     Route: 048
  7. ALCOHOL SCRUB [Suspect]
     Active Substance: ALCOHOL
  8. LOSARTAN POTASSIUM AND HYDROCHLOROTHIAZIDE [Concomitant]
     Active Substance: HYDROCHLOROTHIAZIDE\LOSARTAN POTASSIUM
     Dosage: 12.5 MG, 1X/DAY
     Route: 048

REACTIONS (3)
  - Blister [Recovered/Resolved]
  - Rash erythematous [Recovered/Resolved]
  - Application site vesicles [None]
